FAERS Safety Report 5485008-X (Version None)
Quarter: 2007Q4

REPORT INFORMATION
  Report Type: 
  Country: None (occurrence: None)
  Receive Date: 20071015
  Receipt Date: 20071004
  Transmission Date: 20080405
  Serious: Yes (Congenital Anomaly, Other)
  Sender: FDA-Public Use
  Company Number: PHBS2007IT16002

PATIENT
  Sex: Female

DRUGS (3)
  1. VOLTAREN [Suspect]
     Indication: RENAL COLIC
     Dosage: 75 MG, UNK
     Route: 042
     Dates: start: 20070920
  2. BUSCOPAN [Suspect]
     Indication: RENAL COLIC
     Dosage: 1 POSOLOGIC UNIT, QD
     Dates: start: 20070920
  3. BACTRIM [Suspect]
     Indication: RENAL COLIC
     Dosage: 2 POSOLOGIC UNITS, QD
     Route: 048
     Dates: start: 20070922

REACTIONS (3)
  - CAESAREAN SECTION [None]
  - DRUG EXPOSURE DURING PREGNANCY [None]
  - INTRA-UTERINE DEATH [None]
